FAERS Safety Report 24747633 (Version 1)
Quarter: 2024Q4

REPORT INFORMATION
  Report Type: Spontaneous
  Country: US (occurrence: US)
  Receive Date: 20241218
  Receipt Date: 20241218
  Transmission Date: 20250115
  Serious: Yes (Other)
  Sender: PFIZER
  Company Number: US-PFIZER INC-PV202400162335

PATIENT
  Age: 70 Year
  Sex: Female

DRUGS (4)
  1. CABERGOLINE [Suspect]
     Active Substance: CABERGOLINE
     Indication: Pituitary tumour benign
     Dosage: UNK
     Dates: start: 2012
  2. CABERGOLINE [Suspect]
     Active Substance: CABERGOLINE
     Dosage: 1 MG, DAILY
  3. CABERGOLINE [Suspect]
     Active Substance: CABERGOLINE
     Dosage: UNK
  4. TEMOZOLOMIDE [Concomitant]
     Active Substance: TEMOZOLOMIDE
     Dosage: UNK

REACTIONS (3)
  - Drug ineffective [Unknown]
  - Visual impairment [Unknown]
  - Off label use [Unknown]
